FAERS Safety Report 8353415-3 (Version None)
Quarter: 2012Q2

REPORT INFORMATION
  Report Type: 
  Country: None (occurrence: None)
  Receive Date: 20120511
  Receipt Date: 20110614
  Transmission Date: 20120825
  Serious: No
  Sender: FDA-Public Use
  Company Number: US-GLAXOSMITHKLINE-A0760008A

PATIENT
  Age: 53 Year
  Sex: Female

DRUGS (5)
  1. MIDODRINE HYDROCHLORIDE [Concomitant]
  2. PRILOSEC [Concomitant]
  3. TYKERB [Suspect]
     Indication: BREAST CANCER
     Dosage: 5TAB PER DAY
     Route: 048
     Dates: start: 20080501
  4. XELODA [Concomitant]
  5. COREG [Concomitant]

REACTIONS (3)
  - INGROWING NAIL [None]
  - SKIN CHAPPED [None]
  - DIARRHOEA [None]
